FAERS Safety Report 10154373 (Version 2)
Quarter: 2014Q2

REPORT INFORMATION
  Report Type: Spontaneous
  Country: US (occurrence: US)
  Receive Date: 20140506
  Receipt Date: 20140609
  Transmission Date: 20141212
  Serious: No
  Sender: FDA-Public Use
  Company Number: US-PFIZER INC-2014122146

PATIENT
  Age: 49 Year
  Sex: Male
  Weight: 77.1 kg

DRUGS (3)
  1. CHANTIX [Suspect]
     Indication: CEREBRAL ATAXIA
     Dosage: UNK MG, UNK
     Dates: start: 201404
  2. LISINOPRIL [Concomitant]
     Indication: HYPERTENSION
     Dosage: 10 MG, DAILY
  3. PRAVASTATIN [Concomitant]
     Indication: HYPERLIPIDAEMIA
     Dosage: 20 MG, DAILY

REACTIONS (1)
  - Somnolence [Recovered/Resolved]
